FAERS Safety Report 9468828 (Version 1)
Quarter: 2013Q3

REPORT INFORMATION
  Report Type: Spontaneous
  Country: US (occurrence: US)
  Receive Date: 20130821
  Receipt Date: 20130821
  Transmission Date: 20140515
  Serious: Yes (Other)
  Sender: FDA-Public Use
  Company Number: US-BAYER-2013-100070

PATIENT
  Sex: Female

DRUGS (20)
  1. BAYER GENUINE ASPIRIN ORIGINAL STRENGTH [Suspect]
     Dosage: UNK
  2. LYRICA [Concomitant]
     Dosage: UNK
     Route: 048
  3. GABAPENTIN [Concomitant]
     Dosage: UNK
  4. ADVAIR DISKUS [Concomitant]
     Dosage: 1 PUFF, BID
  5. ALBUTEROL SULFATE [Concomitant]
     Dosage: 1 NEBULIZER PER 4-6 HOURS
     Route: 045
  6. ALLOPURINOL [Concomitant]
     Dosage: 1 DF, QD
     Route: 048
  7. CLARITIN [Concomitant]
     Dosage: 1 DOSE, QD
     Route: 048
  8. FENOFIBRATE [Concomitant]
     Indication: BLOOD TRIGLYCERIDES INCREASED
     Dosage: 1 DF, QD
     Route: 048
  9. HYDROCODONE [Concomitant]
     Indication: PAIN
     Dosage: UNK
  10. ACETAMINOPHEN [Concomitant]
     Indication: PAIN
     Dosage: UNK
  11. METHOCARBAMOL [Concomitant]
     Indication: MUSCLE SPASMS
     Dosage: 1-2 DF QID
     Route: 048
  12. MICARDIS HCT [Concomitant]
     Dosage: 1 DF, QD
     Route: 048
  13. NAPROXEN [Concomitant]
     Dosage: 1 DF, BID
     Route: 048
  14. NASACORT [Concomitant]
     Dosage: 2 SPRAYS EACH NOSTRIL
     Route: 045
  15. PAXIL [Concomitant]
     Dosage: 1/2 TABLETS, QD
     Route: 048
  16. PRAVASTATIN [Concomitant]
     Indication: LIPIDS
     Dosage: 1 DF, QD
     Route: 048
  17. PREMARIN [Concomitant]
     Dosage: 1 DF, QD
  18. PROPRANOLOL [Concomitant]
     Dosage: 1 DF, BID
     Route: 048
  19. SINGULAIR [Concomitant]
     Dosage: 1 DF, QHS
     Route: 048
  20. SPIRIVA [Concomitant]
     Dosage: 1 DRY INHALATION DAILY

REACTIONS (2)
  - Analgesic asthma syndrome [None]
  - Drug hypersensitivity [None]
